FAERS Safety Report 5863896-2 (Version None)
Quarter: 2008Q3

REPORT INFORMATION
  Report Type: 
  Country: None (occurrence: None)
  Receive Date: 20080829
  Receipt Date: 20080820
  Transmission Date: 20090109
  Serious: Yes (Other)
  Sender: FDA-Public Use
  Company Number: DE-TEVA-176247ISR

PATIENT
  Age: 40 Year
  Sex: Male

DRUGS (2)
  1. AZILECT [Suspect]
     Route: 048
  2. CITALOPRAM HYDROBROMIDE [Concomitant]

REACTIONS (3)
  - OVERDOSE [None]
  - SEROTONIN SYNDROME [None]
  - SUICIDE ATTEMPT [None]
